FAERS Safety Report 7744466-8 (Version None)
Quarter: 2011Q3

REPORT INFORMATION
  Report Type: 
  Country: None (occurrence: None)
  Receive Date: 20110912
  Receipt Date: 20110907
  Transmission Date: 20111222
  Serious: Yes (Other)
  Sender: FDA-Public Use
  Company Number: CHPA2011US11958

PATIENT
  Sex: Female

DRUGS (2)
  1. GAS-X EXTRA STRENGTH SOFTGELS [Suspect]
     Dosage: A COUPLE, ONCE/SINGLE
     Route: 048
     Dates: start: 20110902, end: 20110902
  2. ALPRAZOLAM [Suspect]
     Indication: NERVOUSNESS
     Dosage: UNK, UNK
     Route: 048

REACTIONS (2)
  - FOREIGN BODY [None]
  - THROAT TIGHTNESS [None]
